FAERS Safety Report 17758236 (Version 1)
Quarter: 2020Q2

REPORT INFORMATION
  Report Type: Spontaneous
  Country: SA (occurrence: SA)
  Receive Date: 20200507
  Receipt Date: 20200507
  Transmission Date: 20200714
  Serious: Yes (Hospitalization, Other)
  Sender: FDA-Public Use
  Company Number: SA-009507513-2005SAU001839

PATIENT
  Age: 48 Year
  Sex: Male

DRUGS (2)
  1. DEXAMETHASONE. [Suspect]
     Active Substance: DEXAMETHASONE
     Indication: PLASMA CELL MYELOMA
     Route: 048
  2. DEXAMETHASONE. [Suspect]
     Active Substance: DEXAMETHASONE
     Dosage: 40 MG, WEEKLY. 2 CYCLES
     Route: 048
     Dates: start: 20190211

REACTIONS (4)
  - Acute kidney injury [Unknown]
  - Product use in unapproved indication [Unknown]
  - Treatment failure [Unknown]
  - Respiratory failure [Unknown]
